FAERS Safety Report 20700787 (Version 1)
Quarter: 2022Q2

REPORT INFORMATION
  Report Type: Spontaneous
  Country: US (occurrence: None)
  Receive Date: 20220411
  Receipt Date: 20220411
  Transmission Date: 20220721
  Serious: Yes (Hospitalization)
  Sender: FDA-Public Use
  Company Number: None

PATIENT
  Age: 59 Year
  Sex: Female

DRUGS (1)
  1. CAPECITABINE [Suspect]
     Active Substance: CAPECITABINE
     Dosage: 2500 MG DAILY ORAL
     Route: 048
     Dates: start: 202203

REACTIONS (3)
  - Platelet count decreased [None]
  - Haemoglobin decreased [None]
  - Renal failure [None]

NARRATIVE: CASE EVENT DATE: 20220411
